FAERS Safety Report 13785073 (Version 3)
Quarter: 2019Q1

REPORT INFORMATION
  Report Type: Spontaneous
  Country: US (occurrence: US)
  Receive Date: 20170724
  Receipt Date: 20190303
  Transmission Date: 20190417
  Serious: No
  Sender: FDA-Public Use
  Company Number: US-IMPAX LABORATORIES, INC-2017-IPXL-01587

PATIENT
  Age: 67 Year
  Sex: Male

DRUGS (1)
  1. RYTARY [Suspect]
     Active Substance: CARBIDOPA\LEVODOPA
     Indication: PRODUCT USED FOR UNKNOWN INDICATION
     Dosage: 23.75/95 MG, 2 CAPSULE, 3 TIMES DAILY
     Route: 048
     Dates: start: 2017, end: 2017

REACTIONS (6)
  - Malaise [Recovered/Resolved]
  - Psychomotor hyperactivity [Recovered/Resolved]
  - Blood pressure increased [Unknown]
  - Anxiety [Recovered/Resolved]
  - Labelled drug-food interaction medication error [Unknown]
  - Panic attack [Recovered/Resolved]

NARRATIVE: CASE EVENT DATE: 2017
